FAERS Safety Report 7319578-3 (Version None)
Quarter: 2011Q1

REPORT INFORMATION
  Report Type: 
  Country: None (occurrence: None)
  Receive Date: 20110228
  Receipt Date: 20100601
  Transmission Date: 20110831
  Serious: No
  Sender: FDA-Public Use
  Company Number: A0862228A

PATIENT
  Age: 43 Year
  Sex: Female

DRUGS (3)
  1. LAMICTAL [Suspect]
     Indication: DEPRESSION
     Dosage: 25MG PER DAY
     Route: 048
     Dates: start: 20100525, end: 20100528
  2. BETA BLOCKER [Concomitant]
  3. XANAX [Concomitant]

REACTIONS (4)
  - LYMPHADENOPATHY [None]
  - TONGUE DISORDER [None]
  - GLOSSODYNIA [None]
  - PHARYNGEAL OEDEMA [None]
